FAERS Safety Report 4412009-2 (Version None)
Quarter: 2004Q3

REPORT INFORMATION
  Report Type: 
  Country: None (occurrence: None)
  Receive Date: 20040729
  Receipt Date: 20040729
  Transmission Date: 20050211
  Serious: No
  Sender: FDA-Public Use
  Company Number: None

PATIENT
  Age: 22 Year
  Sex: Male
  Weight: 50.3493 kg

DRUGS (1)
  1. OXANDROLONE [Suspect]
     Dosage: 2.5 MG BID OTHER
     Route: 050
     Dates: start: 20040618, end: 20040708

REACTIONS (1)
  - LIVER FUNCTION TEST ABNORMAL [None]
